FAERS Safety Report 18250852 (Version 3)
Quarter: 2022Q1

REPORT INFORMATION
  Report Type: Spontaneous
  Country: KR (occurrence: KR)
  Receive Date: 20200909
  Receipt Date: 20220130
  Transmission Date: 20220424
  Serious: Yes (Other)
  Sender: FDA-Public Use
  Company Number: KR-JAZZ-2020-KR-011656

PATIENT
  Age: 1 Year
  Sex: Female

DRUGS (3)
  1. DEFITELIO [Suspect]
     Active Substance: DEFIBROTIDE SODIUM
     Dosage: 16.088 MILLIGRAM/KILOGRAM, QD
     Route: 042
  2. URSODIOL [Concomitant]
     Active Substance: URSODIOL
     Indication: Prophylaxis
  3. HEPARIN [Concomitant]
     Active Substance: HEPARIN SODIUM
     Indication: Prophylaxis

REACTIONS (2)
  - Venoocclusive disease [Recovered/Resolved]
  - Off label use [Unknown]
